FAERS Safety Report 22012379 (Version 1)
Quarter: 2023Q1

REPORT INFORMATION
  Report Type: Spontaneous
  Country: CA (occurrence: CA)
  Receive Date: 20230220
  Receipt Date: 20230220
  Transmission Date: 20230417
  Serious: Yes (Other)
  Sender: FDA-Public Use
  Company Number: CA-BAXTER-2023BAX012834

PATIENT
  Age: 28 Year
  Sex: Female
  Weight: 62 kg

DRUGS (10)
  1. SODIUM CHLORIDE [Suspect]
     Active Substance: SODIUM CHLORIDE
     Indication: Product used for unknown indication
     Dosage: UNK
     Route: 065
  2. INFLIXIMAB [Suspect]
     Active Substance: INFLIXIMAB
     Indication: Colitis ulcerative
     Dosage: 600 MILLIGRAMS (MG) AT AN UNSPECIFIED FREQUENCY
     Route: 042
  3. INFLIXIMAB [Suspect]
     Active Substance: INFLIXIMAB
     Dosage: 7.5 MILLIGRAMS PER KILOGRAM (MG/KG) AT AN UNSPECIFIED FREQUENCY
     Route: 042
  4. INFLIXIMAB [Suspect]
     Active Substance: INFLIXIMAB
     Dosage: 427 MILLIGRAMS (MG) AT AN UNSPECIFIED FREQUENCY
     Route: 065
  5. INFLIXIMAB [Suspect]
     Active Substance: INFLIXIMAB
     Dosage: 443 MILLIGRAMS (MG) AT AN UNSPECIFIED FREQUENCY
     Route: 065
  6. INFLIXIMAB [Suspect]
     Active Substance: INFLIXIMAB
     Dosage: 600 MILLIGRAMS (MG) AT AN UNSPECIFIED FREQUENCY
     Route: 042
  7. INFLIXIMAB [Suspect]
     Active Substance: INFLIXIMAB
     Indication: Colitis ulcerative
     Dosage: 600 MILLIGRAMS (MG) AT AN UNSPECIFIED FREQUENCY, DOSAGE FORM- NOT SPECIFIED
     Route: 042
  8. CALCIUM [Concomitant]
     Active Substance: CALCIUM
     Dosage: 1 DOSAGE FORM AT AN UNSPECIFIED FREQUENCY, DOSAGE FORM- NOT SPECIFIED
     Route: 065
  9. PANTOPRAZOLE SODIUM [Concomitant]
     Active Substance: PANTOPRAZOLE SODIUM
     Dosage: 1 DOSAGE FORM AT AN UNSPECIFIED FREQUENCY
     Route: 065
  10. PREDNISONE [Concomitant]
     Active Substance: PREDNISONE
     Dosage: 1 DOSAGE FORM AT AN UNSPECIFIED FREQUENCY, DOSAGE FORM- NOT SPECIFIED
     Route: 065

REACTIONS (8)
  - Condition aggravated [Not Recovered/Not Resolved]
  - Vein disorder [Not Recovered/Not Resolved]
  - Vein rupture [Not Recovered/Not Resolved]
  - Weight decreased [Not Recovered/Not Resolved]
  - Inappropriate schedule of product administration [Not Recovered/Not Resolved]
  - Intentional product use issue [Not Recovered/Not Resolved]
  - Off label use [Not Recovered/Not Resolved]
  - Product administration error [Not Recovered/Not Resolved]
